FAERS Safety Report 9771402 (Version 1)
Quarter: 2013Q4

REPORT INFORMATION
  Report Type: Spontaneous
  Country: US (occurrence: US)
  Receive Date: 20131219
  Receipt Date: 20131219
  Transmission Date: 20140711
  Serious: No
  Sender: FDA-Public Use
  Company Number: US-009507513-1312USA006400

PATIENT
  Sex: Female
  Weight: 115.65 kg

DRUGS (2)
  1. NEXPLANON [Suspect]
     Indication: CONTRACEPTION
     Dosage: 3 YEAR IMPLANT
     Route: 059
     Dates: start: 20130611
  2. EFFEXOR XR [Concomitant]
     Indication: DEPRESSION

REACTIONS (2)
  - Amenorrhoea [Unknown]
  - Metrorrhagia [Unknown]
